FAERS Safety Report 25697618 (Version 1)
Quarter: 2025Q3

REPORT INFORMATION
  Report Type: Spontaneous
  Country: JP (occurrence: JP)
  Receive Date: 20250819
  Receipt Date: 20250819
  Transmission Date: 20251021
  Serious: Yes (Death, Hospitalization, Other)
  Sender: ASTELLAS
  Company Number: JP-ASTELLAS-2025-AER-044841

PATIENT
  Age: 73 Year
  Sex: Male
  Weight: 78 kg

DRUGS (13)
  1. PADCEV [Suspect]
     Active Substance: ENFORTUMAB VEDOTIN-EJFV
     Indication: Transitional cell carcinoma
     Route: 042
     Dates: start: 20250219, end: 20250305
  2. Bufferin A81 [Concomitant]
     Indication: Product used for unknown indication
     Route: 065
  3. Febuxostat 20mg [Concomitant]
     Indication: Product used for unknown indication
     Route: 065
  4. TELMISARTAN [Concomitant]
     Active Substance: TELMISARTAN
     Indication: Product used for unknown indication
     Route: 065
  5. Carvedilol 10mg [Concomitant]
     Indication: Product used for unknown indication
     Route: 065
  6. ATORVASTATIN [Concomitant]
     Active Substance: ATORVASTATIN
     Indication: Product used for unknown indication
     Route: 065
  7. Lansoprazole OD 15mg [Concomitant]
     Indication: Product used for unknown indication
     Route: 065
  8. Isosorbide mononitrate 20mg [Concomitant]
     Indication: Product used for unknown indication
     Route: 065
  9. Amlodipine OD 5mg [Concomitant]
     Indication: Product used for unknown indication
     Route: 065
  10. Dayvigo 2.5mg [Concomitant]
     Indication: Product used for unknown indication
     Route: 065
     Dates: start: 20250226
  11. Zinc acetate tablets 25mg [Concomitant]
     Indication: Product used for unknown indication
     Route: 065
     Dates: start: 20250305
  12. CEFEPIME HYDROCHLORIDE [Concomitant]
     Active Substance: CEFEPIME HYDROCHLORIDE
     Indication: Febrile neutropenia
     Route: 065
     Dates: start: 202503
  13. Solacet D [Concomitant]
     Indication: Febrile neutropenia
     Route: 065
     Dates: start: 202503

REACTIONS (4)
  - Pulmonary toxicity [Fatal]
  - Drug-induced liver injury [Unknown]
  - Colitis [Unknown]
  - Febrile neutropenia [Recovering/Resolving]

NARRATIVE: CASE EVENT DATE: 20250309
